FAERS Safety Report 25307806 (Version 1)
Quarter: 2025Q2

REPORT INFORMATION
  Report Type: Spontaneous
  Country: US (occurrence: US)
  Receive Date: 20250513
  Receipt Date: 20250513
  Transmission Date: 20250717
  Serious: Yes (Other)
  Sender: COOPERSURGICAL
  Company Number: US-COOPERSURGICAL, INC.-2025CPS003604

PATIENT
  Age: 40 Year
  Sex: Female
  Weight: 70.295 kg

DRUGS (5)
  1. PARAGARD T 380A [Suspect]
     Active Substance: COPPER
     Route: 015
     Dates: start: 20141223
  2. DILTIAZEM [Concomitant]
     Active Substance: DILTIAZEM
     Dates: start: 2021, end: 2025
  3. LISINOPRIL [Concomitant]
     Active Substance: LISINOPRIL
     Dates: start: 2016, end: 2025
  4. LUNESTA [Concomitant]
     Active Substance: ESZOPICLONE
     Dates: start: 2017, end: 2024
  5. UNSPECIFIED INGREDIENT [Concomitant]
     Active Substance: UNSPECIFIED INGREDIENT
     Dates: start: 2016, end: 2020

REACTIONS (9)
  - Reproductive complication associated with device [Not Recovered/Not Resolved]
  - Hysterectomy [Recovered/Resolved]
  - Cyst [Unknown]
  - Device breakage [Recovered/Resolved]
  - Foreign body in reproductive tract [Recovered/Resolved]
  - Complication of device removal [Recovered/Resolved]
  - Embedded device [Recovered/Resolved]
  - Adjustment disorder with anxiety [Unknown]
  - Device dislocation [Recovered/Resolved]

NARRATIVE: CASE EVENT DATE: 20170412
